FAERS Safety Report 25845220 (Version 2)
Quarter: 2025Q4

REPORT INFORMATION
  Report Type: Spontaneous
  Country: CA (occurrence: CA)
  Receive Date: 20250925
  Receipt Date: 20251030
  Transmission Date: 20260118
  Serious: Yes (Hospitalization, Other)
  Sender: TAKEDA
  Company Number: CA-TAKEDA-2025TUS081912

PATIENT
  Age: 49 Year
  Sex: Female
  Weight: 52 kg

DRUGS (3)
  1. GAMMAGARD LIQUID [Suspect]
     Active Substance: HUMAN IMMUNOGLOBULIN G
     Indication: Chronic inflammatory demyelinating polyradiculoneuropathy
     Dosage: 200 MILLILITER
  2. GAMMAGARD LIQUID [Suspect]
     Active Substance: HUMAN IMMUNOGLOBULIN G
     Indication: Ankylosing spondylitis
     Dosage: 200 MILLILITER
     Dates: start: 20250324, end: 20250324
  3. GAMMAGARD LIQUID [Suspect]
     Active Substance: HUMAN IMMUNOGLOBULIN G
     Dosage: 2 GRAM/KILOGRAM

REACTIONS (13)
  - Chills [Recovered/Resolved]
  - Dysphagia [Recovered/Resolved]
  - Hyperhidrosis [Recovered/Resolved]
  - Hypertension [Recovered/Resolved]
  - Meningitis aseptic [Recovered/Resolved]
  - Nausea [Recovered/Resolved]
  - Oedema [Recovered/Resolved]
  - Palpitations [Recovered/Resolved]
  - Pharyngeal swelling [Recovered/Resolved]
  - Tachycardia [Recovered/Resolved]
  - Thunderclap headache [Recovered/Resolved]
  - Transfusion reaction [Recovered/Resolved]
  - Vomiting [Recovered/Resolved]

NARRATIVE: CASE EVENT DATE: 20250326
